FAERS Safety Report 7532467-4 (Version None)
Quarter: 2011Q2

REPORT INFORMATION
  Report Type: 
  Country: None (occurrence: None)
  Receive Date: 20110608
  Receipt Date: 20110526
  Transmission Date: 20111010
  Serious: Yes (Other)
  Sender: FDA-Public Use
  Company Number: PHHY2011FR45963

PATIENT
  Sex: Male

DRUGS (4)
  1. PREVISCAN [Concomitant]
  2. VALSARTAN [Suspect]
     Dosage: 160 MG, UNK
     Route: 048
     Dates: start: 20110501
  3. EPOGEN [Concomitant]
  4. IRBESARTAN [Suspect]
     Dosage: UNK
     Dates: start: 20110125, end: 20110501

REACTIONS (1)
  - HAEMOLYTIC ANAEMIA [None]
